FAERS Safety Report 17806177 (Version 1)
Quarter: 2020Q2

REPORT INFORMATION
  Report Type: Spontaneous
  Country: US (occurrence: US)
  Receive Date: 20200520
  Receipt Date: 20200520
  Transmission Date: 20200714
  Serious: No
  Sender: FDA-Public Use
  Company Number: US-AMGEN-USASP2020079666

PATIENT
  Sex: Male

DRUGS (4)
  1. BYSTOLIC [Concomitant]
     Active Substance: NEBIVOLOL HYDROCHLORIDE
     Dosage: 5 MILLIGRAM
  2. LISINOPRIL. [Concomitant]
     Active Substance: LISINOPRIL
     Dosage: 20 MILLIGRAM
  3. REPATHA [Suspect]
     Active Substance: EVOLOCUMAB
     Indication: ARTHRALGIA
     Dosage: 140 MILLIGRAM PER MILLILITRE, Q2WK
     Route: 058
     Dates: start: 201812
  4. FLUOXETINE [Concomitant]
     Active Substance: FLUOXETINE HYDROCHLORIDE
     Dosage: 20 MILLIGRAM

REACTIONS (2)
  - Product dose omission [Recovered/Resolved]
  - Off label use [Unknown]
